FAERS Safety Report 10481470 (Version 1)
Quarter: 2014Q3

REPORT INFORMATION
  Report Type: Spontaneous
  Country: US (occurrence: US)
  Receive Date: 20140929
  Receipt Date: 20140929
  Transmission Date: 20150326
  Serious: No
  Sender: FDA-Public Use
  Company Number: US-BAYER-2014-144235

PATIENT
  Sex: Female

DRUGS (2)
  1. ALEVE [Suspect]
     Active Substance: NAPROXEN SODIUM
     Indication: ABDOMINAL DISCOMFORT
  2. ALEVE [Suspect]
     Active Substance: NAPROXEN SODIUM
     Indication: NERVOUSNESS
     Dosage: 1 DF, ONCE
     Route: 048

REACTIONS (1)
  - Intentional product misuse [None]
